FAERS Safety Report 9766198 (Version 1)
Quarter: 2013Q4

REPORT INFORMATION
  Report Type: Spontaneous
  Country: US (occurrence: US)
  Receive Date: 20131217
  Receipt Date: 20131217
  Transmission Date: 20140711
  Serious: No
  Sender: FDA-Public Use
  Company Number: US-GLAXOSMITHKLINE-A1022194A

PATIENT
  Age: 55 Year
  Sex: Female

DRUGS (5)
  1. VOTRIENT [Suspect]
     Indication: RENAL CANCER
     Dosage: 4TAB PER DAY
     Route: 048
     Dates: start: 20130306, end: 201304
  2. BACLOFEN [Concomitant]
  3. FAMOTIDINE [Concomitant]
  4. OMEPRAZOLE [Concomitant]
  5. TRAMADOL [Concomitant]

REACTIONS (1)
  - Disease progression [Unknown]
